FAERS Safety Report 22334205 (Version 2)
Quarter: 2023Q2

REPORT INFORMATION
  Report Type: Report from Study
  Country: US (occurrence: US)
  Receive Date: 20230517
  Receipt Date: 20230526
  Transmission Date: 20230721
  Serious: No
  Sender: FDA-Public Use
  Company Number: US-PFIZER INC-US-GBT-021526

PATIENT
  Age: 21 Year
  Sex: Male

DRUGS (2)
  1. OXBRYTA [Suspect]
     Active Substance: VOXELOTOR
     Indication: Sickle cell disease
     Dosage: 1000 MG, 1X/DAY
     Route: 048
     Dates: start: 20230209
  2. OXBRYTA [Suspect]
     Active Substance: VOXELOTOR
     Dosage: 1000 MG, 1X/DAY
     Route: 048
     Dates: start: 20230209

REACTIONS (2)
  - Diarrhoea [Recovering/Resolving]
  - Pain [Not Recovered/Not Resolved]
